FAERS Safety Report 5185135-0 (Version None)
Quarter: 2006Q4

REPORT INFORMATION
  Report Type: 
  Country: None (occurrence: None)
  Receive Date: 20061212
  Receipt Date: 20061205
  Transmission Date: 20070319
  Serious: Yes (Death, Other)
  Sender: FDA-Public Use
  Company Number: 163-21880-06090293

PATIENT
  Age: 63 Year
  Sex: Female

DRUGS (13)
  1. REVLIMID [Suspect]
     Indication: METASTATIC MALIGNANT MELANOMA
     Dosage: 25 MG, 1 IN 1 D, ORAL
     Route: 048
     Dates: start: 20060718
  2. ZOMETA [Concomitant]
  3. MSIR (MORPHINE SULFATE) (15 MILLIGRAM) [Concomitant]
  4. NEURONTIN [Concomitant]
  5. MS CONTIN [Concomitant]
  6. PROTONIX [Concomitant]
  7. ZOLOFT [Concomitant]
  8. FOLIC ACID [Concomitant]
  9. M.V.I. [Concomitant]
  10. REGLAN [Concomitant]
  11. LORTAB [Concomitant]
  12. DULCOLAX [Concomitant]
  13. ARANESP [Concomitant]

REACTIONS (4)
  - FALL [None]
  - HIP FRACTURE [None]
  - MALIGNANT NEOPLASM PROGRESSION [None]
  - METASTATIC MALIGNANT MELANOMA [None]
